FAERS Safety Report 8172935-8 (Version None)
Quarter: 2012Q1

REPORT INFORMATION
  Report Type: 
  Country: None (occurrence: None)
  Receive Date: 20120223
  Receipt Date: 20120215
  Transmission Date: 20120608
  Serious: Yes (Hospitalization, Other)
  Sender: FDA-Public Use
  Company Number: 1000028452

PATIENT
  Sex: Female

DRUGS (5)
  1. DEPAKOTE [Concomitant]
  2. LEXAPRO [Suspect]
     Dosage: 10 MG (10 MG, 1 IN 1 D), ORAL
     Route: 048
     Dates: start: 20110701, end: 20111231
  3. TOPAMAX (TOPIRAMATE) (TOPIRAMATE) [Concomitant]
  4. LEVOTHYROXINE (LEVOTHYROXINE SODIUM) (LEVOTHYROXINE SODIUM) [Concomitant]
  5. LEXAPRO [Suspect]
     Dosage: 5 MG (5 MG, 1 IN 1 D), ORAL
     Route: 048
     Dates: start: 20120104, end: 20120105

REACTIONS (7)
  - INSOMNIA [None]
  - AGITATION [None]
  - ACUTE PSYCHOSIS [None]
  - TREMOR [None]
  - CONVERSION DISORDER [None]
  - DYSKINESIA [None]
  - HALLUCINATION, AUDITORY [None]
